FAERS Safety Report 4363891-9 (Version None)
Quarter: 2004Q2

REPORT INFORMATION
  Report Type: 
  Country: None (occurrence: None)
  Receive Date: 20040519
  Receipt Date: 20040303
  Transmission Date: 20050107
  Serious: Yes (Other)
  Sender: FDA-Public Use
  Company Number: BE-JNJFOC-20040305391

PATIENT
  Sex: Male

DRUGS (3)
  1. CISAPRIDE (CISAPRIDE) SUSPENSION [Suspect]
     Indication: FEEDING PROBLEM IN NEWBORN
     Dosage: 0.2 MG/KG, 4 IN 1 DAY
     Dates: start: 20030616, end: 20030716
  2. THEOPHYLLINE [Suspect]
     Indication: DRUG USE FOR UNKNOWN INDICATION
     Dosage: 3 MG, INTRAVENOUS
     Route: 042
     Dates: start: 20030601
  3. PHOCYTAN (GLUCOSE 1-PHOSPHATE DISODIUM) SOLUTION [Suspect]
     Indication: DRUG USE FOR UNKNOWN INDICATION
     Dosage: ORAL
     Route: 048
     Dates: start: 20030602

REACTIONS (2)
  - DILATATION ATRIAL [None]
  - ELECTROCARDIOGRAM QT CORRECTED INTERVAL PROLONGED [None]
